FAERS Safety Report 25009182 (Version 1)
Quarter: 2025Q1

REPORT INFORMATION
  Report Type: Spontaneous
  Country: DE (occurrence: DE)
  Receive Date: 20250225
  Receipt Date: 20250225
  Transmission Date: 20250409
  Serious: Yes (Hospitalization, Other)
  Sender: GLAND PHARMA LTD
  Company Number: DE-GLANDPHARMA-DE-2025GLNLIT00356

PATIENT
  Age: 52 Year
  Sex: Female

DRUGS (3)
  1. METRONIDAZOLE [Suspect]
     Active Substance: METRONIDAZOLE
     Indication: Clostridium difficile infection
     Route: 048
  2. METRONIDAZOLE [Suspect]
     Active Substance: METRONIDAZOLE
     Route: 042
  3. CEFAZOLIN [Concomitant]
     Active Substance: CEFAZOLIN
     Indication: Antibiotic prophylaxis
     Route: 042

REACTIONS (1)
  - Posterior reversible encephalopathy syndrome [Recovered/Resolved]
